FAERS Safety Report 8460639 (Version 2)
Quarter: 2013Q2

REPORT INFORMATION
  Report Type: Spontaneous
  Country: US (occurrence: None)
  Receive Date: 20120227
  Receipt Date: 20120525
  Transmission Date: 20140414
  Serious: Yes (Other)
  Sender: FDA-Public Use
  Company Number: 342838

PATIENT
  Age: 57 Year
  Sex: Female
  Weight: 95.7 kg

DRUGS (8)
  1. VICTOZA [Suspect]
     Indication: PRODUCT USED FOR UNKNOWN INDICATION
     Dosage: 1.2 MG, QD, SUBCUTANEOUS
     Route: 058
     Dates: start: 201009, end: 20120104
  2. RELAFEN (NABUMETONE) [Concomitant]
  3. CLONAZEPAM [Concomitant]
  4. METFORMIN [Concomitant]
  5. LASIX (FUROSEMIDE) [Concomitant]
  6. LISINOPRIL HCTZ (HYDROCHLOROTHIAZIDE, LISINOPRIL) [Concomitant]
  7. PRAVASTATIN [Concomitant]
  8. AMBIEN (ZOLPIDEM TARTRATE) [Concomitant]

REACTIONS (1)
  - PANCREATITIS [None]
